FAERS Safety Report 14700091 (Version 1)
Quarter: 2018Q1

REPORT INFORMATION
  Report Type: Spontaneous
  Country: CA (occurrence: CA)
  Receive Date: 20180330
  Receipt Date: 20180330
  Transmission Date: 20180509
  Serious: Yes (Hospitalization, Other)
  Sender: FDA-Public Use
  Company Number: CA-GILEAD-2018-0329578

PATIENT
  Age: 52 Year
  Sex: Male
  Weight: 47 kg

DRUGS (1)
  1. DESCOVY [Suspect]
     Active Substance: EMTRICITABINE\TENOFOVIR ALAFENAMIDE FUMARATE
     Indication: HIV INFECTION
     Dosage: 1 DF, UNK
     Route: 048
     Dates: start: 20171107, end: 201712

REACTIONS (6)
  - Acidosis [Unknown]
  - Blood HIV RNA increased [Unknown]
  - Pancreatitis acute [Unknown]
  - Acute kidney injury [Unknown]
  - CD4 lymphocytes decreased [Unknown]
  - Anaemia [Unknown]

NARRATIVE: CASE EVENT DATE: 201712
